FAERS Safety Report 14257219 (Version 2)
Quarter: 2019Q4

REPORT INFORMATION
  Report Type: Spontaneous
  Country: US (occurrence: US)
  Receive Date: 20171206
  Receipt Date: 20191007
  Transmission Date: 20200122
  Serious: Yes (Other)
  Sender: FDA-Public Use
  Company Number: US-STRONGBRIDGE BIOPHARMA-2017-STR-000195

PATIENT

DRUGS (2)
  1. KEVEYIS [Suspect]
     Active Substance: DICHLORPHENAMIDE
     Indication: FAMILIAL PERIODIC PARALYSIS
     Dosage: 100 MG, BID
     Route: 048
     Dates: start: 20170429
  2. KEVEYIS [Suspect]
     Active Substance: DICHLORPHENAMIDE
     Dosage: UNK
     Dates: start: 20170429

REACTIONS (2)
  - Fall [Recovered/Resolved]
  - Hypokalaemia [Not Recovered/Not Resolved]

NARRATIVE: CASE EVENT DATE: 20171128
